FAERS Safety Report 7933357-5 (Version None)
Quarter: 2011Q4

REPORT INFORMATION
  Report Type: 
  Country: None (occurrence: None)
  Receive Date: 20111122
  Receipt Date: 20111122
  Transmission Date: 20120403
  Serious: Yes (Other)
  Sender: FDA-Public Use
  Company Number: None

PATIENT
  Age: 42 Year
  Sex: Female
  Weight: 68 kg

DRUGS (1)
  1. ARIPIPRAZOLE [Suspect]
     Indication: DEPRESSION
     Dosage: 2.5MG
     Route: 048
     Dates: start: 20110924, end: 20110928

REACTIONS (2)
  - MANIA [None]
  - AGITATION [None]
